FAERS Safety Report 24391536 (Version 1)
Quarter: 2024Q4

REPORT INFORMATION
  Report Type: Spontaneous
  Country: CZ (occurrence: CZ)
  Receive Date: 20241003
  Receipt Date: 20241003
  Transmission Date: 20250114
  Serious: Yes (Other)
  Sender: ALEXION PHARMACEUTICALS
  Company Number: None

PATIENT
  Age: 84 Year

DRUGS (6)
  1. DAPAGLIFLOZIN [Suspect]
     Active Substance: DAPAGLIFLOZIN
     Indication: Brain natriuretic peptide increased
     Dosage: 10 MILLIGRAM, QD
  2. DAPAGLIFLOZIN [Suspect]
     Active Substance: DAPAGLIFLOZIN
     Dosage: 10 MILLIGRAM, QD
  3. DAPAGLIFLOZIN [Suspect]
     Active Substance: DAPAGLIFLOZIN
     Dosage: 10 MILLIGRAM, QD
  4. DAPAGLIFLOZIN [Suspect]
     Active Substance: DAPAGLIFLOZIN
     Dosage: 10 MILLIGRAM, QD
  5. FUROSEMIDE [Concomitant]
     Active Substance: FUROSEMIDE
     Dosage: HALF A TABLET A DAY, LONG-TERM MEDICATION
  6. FUROSEMIDE [Concomitant]
     Active Substance: FUROSEMIDE
     Dosage: HALF A TABLET A DAY, LONG-TERM MEDICATION

REACTIONS (8)
  - Urinary tract infection [Unknown]
  - Polyuria [Unknown]
  - Apathy [Unknown]
  - Constipation [Unknown]
  - Testicular swelling [Unknown]
  - Dehydration [Unknown]
  - Urinary incontinence [Unknown]
  - Bladder pain [Unknown]
